FAERS Safety Report 7833604 (Version 6)
Quarter: 2013Q1

REPORT INFORMATION
  Report Type: Spontaneous
  Country: US (occurrence: US)
  Receive Date: 20110228
  Receipt Date: 20130327
  Transmission Date: 20140127
  Serious: Yes (Hospitalization)
  Sender: FDA-Public Use
  Company Number: US-ASTRAZENECA-2010SE55852

PATIENT
  Age: 92 Year
  Sex: Female

DRUGS (4)
  1. CRESTOR [Suspect]
     Route: 048
     Dates: end: 20101123
  2. CRESTOR [Suspect]
     Route: 048
     Dates: start: 201011
  3. STEROIDS [Suspect]
     Route: 065
  4. COUMADIN [Suspect]
     Route: 065

REACTIONS (11)
  - Thrombosis [Unknown]
  - Bronchitis [Unknown]
  - Haemorrhage [Unknown]
  - Haemoglobin abnormal [Unknown]
  - Pneumonia [Unknown]
  - Nasopharyngitis [Unknown]
  - Blood glucose increased [Unknown]
  - Malaise [Unknown]
  - Urinary tract infection [Unknown]
  - Glycosylated haemoglobin increased [Unknown]
  - Asthenia [Unknown]
